FAERS Safety Report 6863651-0 (Version None)
Quarter: 2010Q3

REPORT INFORMATION
  Report Type: 
  Country: None (occurrence: None)
  Receive Date: 20100721
  Receipt Date: 20080306
  Transmission Date: 20110219
  Serious: No
  Sender: FDA-Public Use
  Company Number: US-PFIZER INC-2008022787

PATIENT
  Sex: Female
  Weight: 54.4 kg

DRUGS (4)
  1. CHANTIX [Suspect]
     Indication: SMOKING CESSATION THERAPY
     Route: 048
     Dates: start: 20071001, end: 20071101
  2. VITAMINS [Concomitant]
  3. BENADRYL [Concomitant]
  4. GASTROCROM [Concomitant]

REACTIONS (6)
  - CRYING [None]
  - DEPRESSED MOOD [None]
  - DEPRESSION [None]
  - DYSGEUSIA [None]
  - MENTAL IMPAIRMENT [None]
  - UNEVALUABLE EVENT [None]
